FAERS Safety Report 9224736 (Version 1)
Quarter: 2013Q2

REPORT INFORMATION
  Report Type: Spontaneous
  Country: US (occurrence: None)
  Receive Date: 20130409
  Receipt Date: 20130409
  Transmission Date: 20140414
  Serious: Yes (Hospitalization, Other)
  Sender: FDA-Public Use
  Company Number: 2013P1004369

PATIENT
  Sex: Female

DRUGS (2)
  1. INFUMORPH [Suspect]
  2. NAROPIN [Suspect]

REACTIONS (2)
  - Bacteraemia [None]
  - Device related infection [None]
